FAERS Safety Report 7770505-4 (Version None)
Quarter: 2011Q3

REPORT INFORMATION
  Report Type: 
  Country: None (occurrence: None)
  Receive Date: 20110922
  Receipt Date: 20110401
  Transmission Date: 20111222
  Serious: No
  Sender: FDA-Public Use
  Company Number: US-ASTRAZENECA-2011SE18732

PATIENT
  Age: 25 Year
  Sex: Female

DRUGS (3)
  1. LAMICTAL [Concomitant]
  2. TOPAMAX [Concomitant]
  3. SEROQUEL [Suspect]
     Route: 048
     Dates: start: 20100101, end: 20110301

REACTIONS (3)
  - IMPAIRED WORK ABILITY [None]
  - DRUG DOSE OMISSION [None]
  - WITHDRAWAL SYNDROME [None]
